FAERS Safety Report 13583211 (Version 2)
Quarter: 2017Q2

REPORT INFORMATION
  Report Type: Spontaneous
  Country: US (occurrence: US)
  Receive Date: 20170525
  Receipt Date: 20170611
  Transmission Date: 20170830
  Serious: Yes (Other)
  Sender: FDA-Public Use
  Company Number: US-009507513-1705USA007822

PATIENT
  Age: 60 Year
  Sex: Female

DRUGS (12)
  1. VALTREX [Suspect]
     Active Substance: VALACYCLOVIR HYDROCHLORIDE
     Indication: GENITAL HERPES
     Dosage: 1 G, QD
     Dates: start: 200907
  2. ABILIFY [Suspect]
     Active Substance: ARIPIPRAZOLE
     Indication: DEPRESSION
     Dosage: UNK
     Dates: start: 201409
  3. OMEGA-3 ACIDS [Concomitant]
     Active Substance: OMEGA-3 FATTY ACIDS
  4. VITAMIN B COMPLEX [Concomitant]
     Active Substance: CYANOCOBALAMIN\DEXPANTHENOL\NIACINAMIDE\PYRIDOXINE HYDROCHLORIDE\RIBOFLAVIN 5^-PHOSPHATE SODIUM\THIAMINE HYDROCHLORIDE\VITAMIN B COMPLEX
  5. WELLBUTRIN [Suspect]
     Active Substance: BUPROPION HYDROCHLORIDE
     Indication: DEPRESSION
     Dosage: UNK
  6. WELLBUTRIN [Suspect]
     Active Substance: BUPROPION HYDROCHLORIDE
     Dosage: 450 MG, UNK
  7. LEVOTHYROXINE SODIUM. [Concomitant]
     Active Substance: LEVOTHYROXINE SODIUM
  8. CALCIUM (UNSPECIFIED) (+) VITAMINS (UNSPECIFIED) [Concomitant]
     Active Substance: CALCIUM\VITAMINS
  9. REMERON [Suspect]
     Active Substance: MIRTAZAPINE
     Indication: DEPRESSION
     Dosage: UNK
     Route: 048
     Dates: start: 201409
  10. WELLBUTRIN [Suspect]
     Active Substance: BUPROPION HYDROCHLORIDE
     Dosage: 200 MG, UNK
  11. WELLBUTRIN [Suspect]
     Active Substance: BUPROPION HYDROCHLORIDE
     Dosage: 75 MG, UNK
  12. WELLBUTRIN [Suspect]
     Active Substance: BUPROPION HYDROCHLORIDE
     Dosage: 100 MG, UNK
     Dates: start: 2010

REACTIONS (36)
  - Confusional state [Unknown]
  - Mental status changes [Unknown]
  - Speech disorder [Unknown]
  - Renal disorder [Unknown]
  - Irritability [Unknown]
  - Fatigue [Unknown]
  - Disturbance in attention [Unknown]
  - Paranoia [Recovered/Resolved]
  - Screaming [Unknown]
  - Anger [Unknown]
  - Delirium [Unknown]
  - Thinking abnormal [Unknown]
  - Fear [Unknown]
  - Hallucination [Unknown]
  - Mood altered [Unknown]
  - Nausea [Unknown]
  - Anxiety [Recovered/Resolved]
  - Micturition disorder [Unknown]
  - Abdominal discomfort [Unknown]
  - Mental disorder [Unknown]
  - Jealous delusion [Unknown]
  - Psychotic disorder [Recovered/Resolved]
  - Tremor [Unknown]
  - Decreased interest [Unknown]
  - Dysphagia [Unknown]
  - Encephalopathy [Unknown]
  - Personality change [Recovered/Resolved]
  - Agitation [Unknown]
  - Depressed mood [Recovered/Resolved]
  - Nervousness [Unknown]
  - Abnormal behaviour [Unknown]
  - Aggression [Unknown]
  - Depression [Recovered/Resolved]
  - Mood swings [Unknown]
  - Insomnia [Recovered/Resolved]
  - Inappropriate prescribing [Unknown]

NARRATIVE: CASE EVENT DATE: 2014
